FAERS Safety Report 11802307 (Version 1)
Quarter: 2015Q4

REPORT INFORMATION
  Report Type: Spontaneous
  Country: US (occurrence: US)
  Receive Date: 20151204
  Receipt Date: 20151204
  Transmission Date: 20160305
  Serious: No
  Sender: FDA-Public Use
  Company Number: US-GLAXOSMITHKLINE-US2015170581

PATIENT
  Sex: Male

DRUGS (2)
  1. TEGRETOL [Concomitant]
     Active Substance: CARBAMAZEPINE
  2. LAMOTRIGINE TABLET [Suspect]
     Active Substance: LAMOTRIGINE
     Indication: SEIZURE
     Dosage: UNK
     Route: 048

REACTIONS (4)
  - Rash [Recovered/Resolved]
  - Drug hypersensitivity [Unknown]
  - Drug ineffective [Recovered/Resolved]
  - Dizziness [Recovered/Resolved]
